FAERS Safety Report 8344469-9 (Version None)
Quarter: 2012Q2

REPORT INFORMATION
  Report Type: 
  Country: None (occurrence: None)
  Receive Date: 20120508
  Receipt Date: 20120430
  Transmission Date: 20120825
  Serious: Yes (Hospitalization)
  Sender: FDA-Public Use
  Company Number: US-ASTRAZENECA-2012SE28095

PATIENT
  Age: 64 Year
  Sex: Female
  Weight: 76.2 kg

DRUGS (2)
  1. SYMBICORT [Suspect]
     Indication: RESPIRATORY DISORDER
     Dosage: TWO PUFFS, TWO TIMES A DAY
     Route: 055
  2. NEXIUM [Concomitant]
     Route: 048

REACTIONS (3)
  - OCULAR ISCHAEMIC SYNDROME [None]
  - RETINAL ARTERY OCCLUSION [None]
  - BLOOD PRESSURE INCREASED [None]
